FAERS Safety Report 5167220-2 (Version None)
Quarter: 2006Q4

REPORT INFORMATION
  Report Type: 
  Country: None (occurrence: None)
  Receive Date: 20061129
  Receipt Date: 20061115
  Transmission Date: 20070319
  Serious: Yes (Death)
  Sender: FDA-Public Use
  Company Number: CLOF-10379

PATIENT
  Age: 15 Year
  Sex: Female

DRUGS (22)
  1. CLOFARABINE [Suspect]
     Indication: ACUTE LYMPHOCYTIC LEUKAEMIA
     Dates: start: 20061024, end: 20061028
  2. LIQUID PARAFFIN [Concomitant]
  3. ZOPLICONE [Concomitant]
  4. FENTANYL [Concomitant]
  5. HYOSCINE HYDROCHLORIDE [Concomitant]
  6. MIDAZOLAM HYDROCHLORIDE [Concomitant]
  7. MAGNESIUM [Concomitant]
  8. GABAPENTIN [Concomitant]
  9. LEVOMEPROMAZINE [Concomitant]
  10. MOVICOL [Concomitant]
  11. ALFENTANIL [Concomitant]
  12. DEXAMETHASONE [Concomitant]
  13. ACYCLOVIR [Concomitant]
  14. ACYCLOVIR [Concomitant]
  15. PIPERACILLIN AND TAZOBACTAM [Concomitant]
  16. GENTAMICIN [Concomitant]
  17. HYOSCINE HBR HYT [Concomitant]
  18. ACETAMINOPHEN [Concomitant]
  19. POTASSIUM CHLORIDE [Concomitant]
  20. PIPERACILLIN [Concomitant]
  21. NORADRENALINE [Concomitant]
  22. NALOXONE [Concomitant]

REACTIONS (11)
  - ABDOMINAL PAIN [None]
  - BACK PAIN [None]
  - DEPRESSED LEVEL OF CONSCIOUSNESS [None]
  - GENERAL PHYSICAL HEALTH DETERIORATION [None]
  - HAEMATEMESIS [None]
  - HYPOTENSION [None]
  - NEUTROPENIC SEPSIS [None]
  - PERIPHERAL CIRCULATORY FAILURE [None]
  - RENAL FAILURE [None]
  - TACHYCARDIA [None]
  - THERAPY NON-RESPONDER [None]
